FAERS Safety Report 10883098 (Version 1)
Quarter: 2015Q1

REPORT INFORMATION
  Report Type: Spontaneous
  Country: US (occurrence: None)
  Receive Date: 20150226
  Receipt Date: 20150226
  Transmission Date: 20150721
  Serious: Yes (Other)
  Sender: FDA-Public Use
  Company Number: None

PATIENT
  Age: 39 Year
  Sex: Female
  Weight: 85.28 kg

DRUGS (5)
  1. ONE A DAY CHEWABLE [Concomitant]
  2. NOVOLOG [Suspect]
     Active Substance: INSULIN ASPART
     Indication: DIABETES MELLITUS
     Route: 030
     Dates: start: 20140601, end: 20150225
  3. LEVEMIR [Concomitant]
     Active Substance: INSULIN DETEMIR
  4. ALEVE [Concomitant]
     Active Substance: NAPROXEN SODIUM
  5. NOVOLOG [Concomitant]
     Active Substance: INSULIN ASPART

REACTIONS (1)
  - Blindness [None]

NARRATIVE: CASE EVENT DATE: 20150220
